FAERS Safety Report 7383470-9 (Version None)
Quarter: 2011Q1

REPORT INFORMATION
  Report Type: 
  Country: None (occurrence: None)
  Receive Date: 20110330
  Receipt Date: 20110322
  Transmission Date: 20110831
  Serious: Yes (Hospitalization)
  Sender: FDA-Public Use
  Company Number: ES-PFIZER INC-2011046707

PATIENT
  Age: 64 Year
  Sex: Male

DRUGS (10)
  1. SEGURIL [Concomitant]
     Indication: OEDEMA
  2. OMEPRAZOLE [Concomitant]
     Indication: PROPHYLAXIS
     Dosage: 20 MG, UNK
  3. TRAMADOL [Concomitant]
     Indication: PAIN
     Dosage: 50 MG, UNK
  4. SUNITINIB MALATE [Suspect]
     Indication: METASTATIC RENAL CELL CARCINOMA
     Dosage: 50 MG DAILY FOR 4 WEEKS, EVERY 6 WEEKS
     Route: 048
     Dates: start: 20110210, end: 20110216
  5. ATACAND [Concomitant]
     Indication: HYPERTENSION
     Dosage: 16 MG, UNK
  6. CLEXANE [Concomitant]
     Indication: VENOUS THROMBOSIS
     Dosage: 120 MG, 1X/DAY
  7. AMLODIPINE/OLMESARTAN MEDOXOMIL [Concomitant]
     Indication: HYPERTENSION
     Dosage: 20/5
  8. ALDACTONE [Concomitant]
     Indication: HYPERTENSION
     Dosage: 100 MG, UNK
  9. URBASON [Concomitant]
     Indication: NEPHROTIC SYNDROME
     Dosage: 60 MG, UNK
  10. ALLOPURINOL [Concomitant]
     Indication: NEPHROTIC SYNDROME
     Dosage: 300 MG, UNK

REACTIONS (2)
  - DISEASE PROGRESSION [None]
  - METASTATIC RENAL CELL CARCINOMA [None]
